FAERS Safety Report 13879458 (Version 1)
Quarter: 2017Q3

REPORT INFORMATION
  Report Type: Spontaneous
  Country: US (occurrence: US)
  Receive Date: 20170817
  Receipt Date: 20170817
  Transmission Date: 20171127
  Serious: No
  Sender: FDA-Public Use
  Company Number: US-ENDO PHARMACEUTICALS INC-2016-007104

PATIENT
  Sex: Female
  Weight: 88.53 kg

DRUGS (1)
  1. SUMAVEL DOSEPRO [Suspect]
     Active Substance: SUMATRIPTAN SUCCINATE
     Indication: MIGRAINE
     Dosage: 6 MG, 1 INJECTION INTO THIGH AT ONSET OF MIGRAINE, ANOTHER INJECTION 2 HOURS LATER IF NOT RELIEVED
     Route: 065
     Dates: start: 20141209

REACTIONS (4)
  - Device malfunction [Recovered/Resolved]
  - Injection site bruising [Unknown]
  - Injection site urticaria [Unknown]
  - Accidental exposure to product [Recovered/Resolved]

NARRATIVE: CASE EVENT DATE: 2014
